FAERS Safety Report 23112566 (Version 1)
Quarter: 2023Q4

REPORT INFORMATION
  Report Type: Spontaneous
  Country: US (occurrence: US)
  Receive Date: 20231027
  Receipt Date: 20231027
  Transmission Date: 20240109
  Serious: Yes (Life-Threatening, Hospitalization, Other)
  Sender: FDA-Public Use
  Company Number: US-drreddys-LIT/USA/23/0180550

PATIENT
  Age: 58 Year
  Sex: Male

DRUGS (8)
  1. GEMCITABINE [Suspect]
     Active Substance: GEMCITABINE
     Indication: Hodgkin^s disease
     Dosage: TWO CYCLES OF CHEMOTHERAPY
  2. DOXORUBICIN [Suspect]
     Active Substance: DOXORUBICIN
     Indication: Hodgkin^s disease
     Dosage: TWO CYCLES OF CHEMOTHERAPY
  3. CARMUSTINE [Suspect]
     Active Substance: CARMUSTINE
     Indication: Stem cell transplant
     Dosage: BEAM REGIMEN
  4. MELPHALAN [Suspect]
     Active Substance: MELPHALAN
     Indication: Stem cell transplant
     Dosage: BEAM REGIMEN
  5. PEMBROLIZUMAB [Suspect]
     Active Substance: PEMBROLIZUMAB
     Indication: Hodgkin^s disease
     Dosage: TWO CYCLES OF CHEMOTHERAPY
  6. VINORELBINE [Suspect]
     Active Substance: VINORELBINE TARTRATE
     Indication: Hodgkin^s disease
     Dosage: TWO CYCLES OF CHEMOTHERAPY
  7. ETOPOSIDE [Suspect]
     Active Substance: ETOPOSIDE
     Indication: Stem cell transplant
     Dosage: BEAM REGIMEN
  8. CYTARABINE [Suspect]
     Active Substance: CYTARABINE
     Indication: Stem cell transplant
     Dosage: BEAM REGIMEN

REACTIONS (5)
  - Cardiac tamponade [Recovering/Resolving]
  - Hypothyroidism [Recovering/Resolving]
  - Leukopenia [Recovering/Resolving]
  - Thrombocytopenia [Recovering/Resolving]
  - Product use in unapproved indication [Unknown]
